FAERS Safety Report 15320427 (Version 1)
Quarter: 2018Q3

REPORT INFORMATION
  Report Type: Spontaneous
  Country: DE (occurrence: DE)
  Receive Date: 20180827
  Receipt Date: 20180827
  Transmission Date: 20181010
  Serious: Yes (Disabling)
  Sender: FDA-Public Use
  Company Number: DE-BAYER-2018-130135

PATIENT
  Age: 49 Year
  Sex: Male

DRUGS (1)
  1. GADOLINIUM IN UNSPECIFIED DRUG [Suspect]
     Active Substance: GADOLINIUM
     Dosage: PRN, ALL TOGETHER 15 TIMES

REACTIONS (8)
  - Gait disturbance [Recovering/Resolving]
  - Nontherapeutic agent blood positive [None]
  - Movement disorder [Recovering/Resolving]
  - Pain [Recovering/Resolving]
  - Impaired work ability [None]
  - Respiratory disorder [None]
  - Speech disorder [Recovering/Resolving]
  - Nontherapeutic agent urine positive [None]
